FAERS Safety Report 17554604 (Version 1)
Quarter: 2020Q1

REPORT INFORMATION
  Report Type: Spontaneous
  Country: US (occurrence: US)
  Receive Date: 20200318
  Receipt Date: 20200318
  Transmission Date: 20200409
  Serious: No
  Sender: FDA-Public Use
  Company Number: US-AUROBINDO-AUR-APL-2019-014170

PATIENT
  Sex: Female

DRUGS (2)
  1. CELECOXIB CAPSULES 200 MG [Suspect]
     Active Substance: CELECOXIB
     Indication: ARTHRITIS
     Dosage: 02 DOSAGE FORM, ONCE A DAY
     Route: 065
     Dates: start: 20190226
  2. CELECOXIB CAPSULES 200 MG [Suspect]
     Active Substance: CELECOXIB
     Dosage: 01 DOSAGE FORM, ONCE A DAY
     Route: 065

REACTIONS (2)
  - Faeces discoloured [Unknown]
  - Product dose omission [Unknown]
